FAERS Safety Report 7653571-6 (Version None)
Quarter: 2011Q3

REPORT INFORMATION
  Report Type: 
  Country: None (occurrence: None)
  Receive Date: 20110803
  Receipt Date: 20110729
  Transmission Date: 20111222
  Serious: Yes (Other)
  Sender: FDA-Public Use
  Company Number: PHHY2011IE68151

PATIENT
  Sex: Male

DRUGS (2)
  1. LORATADINE [Suspect]
     Dosage: 10 MG, UNK
     Route: 048
     Dates: start: 20110706
  2. ISOTRETINOIN [Concomitant]

REACTIONS (3)
  - EMOTIONAL DISORDER [None]
  - DISTURBANCE IN SOCIAL BEHAVIOUR [None]
  - AGGRESSION [None]
